FAERS Safety Report 10090299 (Version 5)
Quarter: 2014Q2

REPORT INFORMATION
  Report Type: Report from Study
  Country: US (occurrence: US)
  Receive Date: 20140421
  Receipt Date: 20140618
  Transmission Date: 20141212
  Serious: Yes (Life-Threatening)
  Sender: FDA-Public Use
  Company Number: US-SA-2014SA050873

PATIENT
  Age: 58 Year
  Sex: Female
  Weight: 84 kg

DRUGS (12)
  1. TERIFLUNOMIDE [Suspect]
     Indication: MULTIPLE SCLEROSIS
     Route: 048
     Dates: start: 20140401
  2. SYNTHROID [Concomitant]
  3. ALL OTHER THERAPEUTIC PRODUCTS [Concomitant]
  4. ROBAXIN [Concomitant]
  5. VERAPAMIL [Concomitant]
  6. PHENERGAN [Concomitant]
  7. ESTRADIOL [Concomitant]
  8. KLONOPIN [Concomitant]
  9. LIPITOR /UNK/ [Concomitant]
  10. ZANAFLEX [Concomitant]
  11. NAPROXEN [Concomitant]
  12. VITAMIN D3 [Concomitant]

REACTIONS (1)
  - Non-cardiac chest pain [Recovered/Resolved]
